FAERS Safety Report 23826241 (Version 3)
Quarter: 2024Q2

REPORT INFORMATION
  Report Type: Spontaneous
  Country: US (occurrence: US)
  Receive Date: 20240507
  Receipt Date: 20240618
  Transmission Date: 20240716
  Serious: No
  Sender: FDA-Public Use
  Company Number: US-JNJFOC-20240467114

PATIENT
  Sex: Female

DRUGS (30)
  1. SIMPONI [Suspect]
     Active Substance: GOLIMUMAB
     Indication: Rheumatoid arthritis
     Dosage: STRENGTH- 50.00 MG / 0.50 ML
     Route: 058
     Dates: start: 2012
  2. SIMPONI [Suspect]
     Active Substance: GOLIMUMAB
     Dosage: STRENGTH- 50.00 MG / 0.50 ML
     Route: 058
  3. AMITRIPTYLINE [Concomitant]
     Active Substance: AMITRIPTYLINE
     Dosage: TAKE 2 TABLETS EVERY DAY BY ORAL ROUTE AT BEDTIME.
     Route: 048
  4. AMLODIPINE [Concomitant]
     Active Substance: AMLODIPINE BESYLATE
     Dosage: 1 TABLET DAILY
     Route: 048
     Dates: end: 20231227
  5. ASPIRIN [Concomitant]
     Active Substance: ASPIRIN
     Dosage: 1 TABLET DAILY
     Route: 048
  6. CETYLPYRIDINIUM CHLORIDE [Concomitant]
     Active Substance: CETYLPYRIDINIUM CHLORIDE
     Dosage: DAILY
  7. CALCIUM CITRATE [Concomitant]
     Active Substance: CALCIUM CITRATE
     Dosage: 1 TABLET TWICE DAILY
  8. CYCLOBENZAPRINE [Concomitant]
     Active Substance: CYCLOBENZAPRINE
     Indication: Muscle spasms
     Dosage: 1 TAB TWICE DAILY AS NEEDED
  9. CYCLOSPORINE [Concomitant]
     Active Substance: CYCLOSPORINE
     Dosage: INSTILL 1 DROP INTO AFFECTED EYE(S) BY OPHTHALMIC ROUTE EVERY 12 HOURS
     Route: 047
  10. EPINEPHRINE [Concomitant]
     Active Substance: EPINEPHRINE
     Dosage: PRN,?STRENGTH:0.3 MG/0.3 ML INJECTION, AUTO-INJECTOR
  11. ESOMEPRAZOLE MAGNESIUM [Concomitant]
     Active Substance: ESOMEPRAZOLE MAGNESIUM
     Dosage: 1 CAPSULE (DELAYED RELEASE) EVERY DAY BY ORAL ROUTE.
     Route: 048
  12. FLUCYTOSINE [Concomitant]
     Active Substance: FLUCYTOSINE
     Indication: Sinus disorder
     Dosage: EMPTY 1 CAPSULE INTO IRRIGATION SYSTEM, ADD DISTILLED WATER, IRRIGATE - TWICE DAILY
     Route: 048
  13. FOLIC ACID [Concomitant]
     Active Substance: FOLIC ACID
     Dosage: 1 TABLET ONCE DAILY
  14. FUROSEMIDE [Concomitant]
     Active Substance: FUROSEMIDE
     Dosage: 1 TABLET DAILY,
  15. LASIX [Concomitant]
     Active Substance: FUROSEMIDE
     Dosage: 2 TABS DAILY
  16. IBANDRONATE SODIUM [Concomitant]
     Active Substance: IBANDRONATE SODIUM
     Dosage: 1 TABLET ONCE MONTHLY
  17. LATANOPROST [Concomitant]
     Active Substance: LATANOPROST
     Dosage: 1 DROP IN EACH IN THE EVENING
  18. LEVOTHYROXINE [Concomitant]
     Active Substance: LEVOTHYROXINE\LEVOTHYROXINE SODIUM
     Dosage: 1 TABLET PO DAILY
     Route: 048
  19. METHOTREXATE [Concomitant]
     Active Substance: METHOTREXATE
     Dosage: 8 TABLETS EVERY WEEK CHANGE TO 10 TABLETS WEEKLY
     Route: 048
  20. METOPROLOL SUCCINATE [Concomitant]
     Active Substance: METOPROLOL SUCCINATE
     Dosage: EXTENDED RELEASE 24 HR,1 TABLET EVERY DAY
     Route: 048
  21. NITROFURANTOIN MONOHYDRATE MACROCRYSTALS [Concomitant]
     Active Substance: NITROFURANTOIN\NITROFURANTOIN MONOHYDRATE
     Dosage: 1 TABLET ONCE NIGHTLY
  22. PREMARIN [Concomitant]
     Active Substance: ESTROGENS, CONJUGATED
     Dosage: 3-4 TIMES WEEKLY
  23. LEVBID [Concomitant]
     Active Substance: HYOSCYAMINE SULFATE
     Indication: Irritable bowel syndrome
     Dosage: ONE TABLET TWICE A DAY AS NEEDED
  24. TRAMADOL [Concomitant]
     Active Substance: TRAMADOL\TRAMADOL HYDROCHLORIDE
     Indication: Pain
     Dosage: TAKE ONE (1) TABLET BY MOUT!-1 EVERY SIX HOURS AS NEEDED FOR PAIN
  25. TRETINOIN [Concomitant]
     Active Substance: TRETINOIN
     Dosage: TOPICAL CREAM
  26. VITAMIN D3 [Concomitant]
     Active Substance: CHOLECALCIFEROL
     Dosage: 1 TABLET EVERY OTHER DAY
  27. POTCHLOR [Concomitant]
     Dosage: 1 TABLET DAILY
  28. TRIAMCINOLONE [Concomitant]
     Active Substance: TRIAMCINOLONE
     Dosage: APPLY IN THIN LAYER TO THE AFFECTED AREA TWICE A DAY.
  29. AZELASTINE HYDROCHLORIDE [Concomitant]
     Active Substance: AZELASTINE HYDROCHLORIDE
  30. MODERNA COVID-19 VACCINE [Concomitant]
     Active Substance: ELASOMERAN
     Dosage: BOOSTER DOSE
     Dates: start: 20240421

REACTIONS (3)
  - Device leakage [Unknown]
  - Accidental exposure to product [Unknown]
  - Underdose [Unknown]

NARRATIVE: CASE EVENT DATE: 20240421
